FAERS Safety Report 9852315 (Version 1)
Quarter: 2014Q1

REPORT INFORMATION
  Report Type: Spontaneous
  Country: SE (occurrence: SE)
  Receive Date: 20140129
  Receipt Date: 20140129
  Transmission Date: 20141002
  Serious: Yes (Hospitalization, Other)
  Sender: FDA-Public Use
  Company Number: SE-ELI_LILLY_AND_COMPANY-SE201401007204

PATIENT
  Sex: Female

DRUGS (4)
  1. CYMBALTA [Suspect]
     Indication: DIABETIC NEUROPATHY
     Dosage: 30 MG, UNKNOWN
     Route: 048
     Dates: start: 20131112, end: 20131209
  2. CYMBALTA [Suspect]
     Dosage: 60 MG, QD
     Route: 048
     Dates: start: 20131210, end: 20131227
  3. XARELTO [Concomitant]
     Indication: CARDIAC FIBRILLATION
     Dosage: 20 MG, UNKNOWN
     Route: 065
     Dates: start: 201304
  4. INSULATARD                         /00646002/ [Concomitant]
     Indication: PRODUCT USED FOR UNKNOWN INDICATION
     Dosage: 44 U, UNKNOWN
     Route: 065

REACTIONS (4)
  - Loss of consciousness [Recovering/Resolving]
  - Convulsion [Recovering/Resolving]
  - Anxiety [Recovering/Resolving]
  - Tremor [Recovering/Resolving]
